FAERS Safety Report 16871568 (Version 1)
Quarter: 2019Q4

REPORT INFORMATION
  Report Type: Spontaneous
  Country: US (occurrence: US)
  Receive Date: 20191001
  Receipt Date: 20191001
  Transmission Date: 20200122
  Serious: Yes (Disabling)
  Sender: FDA-Public Use
  Company Number: US-TEVA-2019-US-1115067

PATIENT

DRUGS (3)
  1. TAXOTERE [Suspect]
     Active Substance: DOCETAXEL
     Route: 065
     Dates: start: 20131119, end: 20140304
  2. DOCETAXEL. [Suspect]
     Active Substance: DOCETAXEL
     Dosage: INJECTION CONCENTRATE
     Route: 065
     Dates: start: 20131119, end: 20140304
  3. DOCETAXEL. [Suspect]
     Active Substance: DOCETAXEL
     Route: 065
     Dates: start: 20131119, end: 20140304

REACTIONS (1)
  - Alopecia [Not Recovered/Not Resolved]
